FAERS Safety Report 20642364 (Version 1)
Quarter: 2022Q1

REPORT INFORMATION
  Report Type: Spontaneous
  Country: US (occurrence: US)
  Receive Date: 20220328
  Receipt Date: 20220328
  Transmission Date: 20220423
  Serious: No
  Sender: FDA-Public Use
  Company Number: US-Blueprint Medicines Corporation-SP-US-2022-000748

PATIENT
  Age: 51 Year
  Sex: Female

DRUGS (1)
  1. AYVAKIT [Suspect]
     Active Substance: AVAPRITINIB
     Indication: Gastrointestinal stromal tumour
     Route: 048
     Dates: start: 20210217

REACTIONS (5)
  - Blood bilirubin increased [Unknown]
  - Lacrimation increased [Unknown]
  - Eye swelling [Unknown]
  - Skin laceration [Unknown]
  - Product dose omission in error [Unknown]
